FAERS Safety Report 6254944-9 (Version None)
Quarter: 2009Q3

REPORT INFORMATION
  Report Type: 
  Country: None (occurrence: None)
  Receive Date: 20090702
  Receipt Date: 20090616
  Transmission Date: 20100115
  Serious: Yes (Other)
  Sender: FDA-Public Use
  Company Number: BR-PFIZER INC-2009228424

PATIENT
  Age: 75 Year

DRUGS (8)
  1. XALACOM [Suspect]
     Indication: GLAUCOMA
     Dosage: UNK
  2. XALATAN [Suspect]
     Indication: GLAUCOMA
     Dosage: UNK
  3. LOSARTAN POTASSIUM [Concomitant]
     Dosage: UNK
  4. ATENOLOL [Concomitant]
     Dosage: UNK
  5. OMEPRAZOLE [Concomitant]
     Dosage: UNK
  6. DORZOLAMIDE HYDROCHLORIDE [Concomitant]
     Dosage: UNK
  7. TRISORB [Concomitant]
     Dosage: UNK
  8. NEVANAC [Concomitant]
     Dosage: UNK

REACTIONS (8)
  - CATARACT OPERATION [None]
  - DRY EYE [None]
  - ERYTHEMA OF EYELID [None]
  - EYE DISCHARGE [None]
  - EYELID DISORDER [None]
  - GLAUCOMA SURGERY [None]
  - OCULAR HYPERAEMIA [None]
  - VISUAL IMPAIRMENT [None]
